FAERS Safety Report 13120552 (Version 2)
Quarter: 2017Q2

REPORT INFORMATION
  Report Type: Spontaneous
  Country: US (occurrence: US)
  Receive Date: 20170117
  Receipt Date: 20170406
  Transmission Date: 20170830
  Serious: No
  Sender: FDA-Public Use
  Company Number: US-PFIZER INC-2017014074

PATIENT
  Age: 53 Year
  Sex: Female
  Weight: 87.75 kg

DRUGS (2)
  1. IBRANCE [Suspect]
     Active Substance: PALBOCICLIB
     Indication: BREAST CANCER FEMALE
     Dosage: 125 MG, CYCLIC (1QD, 21 ON 7 OFF)
     Route: 048
     Dates: start: 201701, end: 20170104
  2. IBRANCE [Suspect]
     Active Substance: PALBOCICLIB
     Dosage: 125 MG, CYCLIC (1QD, 21 ON 7 OFF)
     Route: 048
     Dates: start: 201702, end: 201703

REACTIONS (2)
  - Viral upper respiratory tract infection [Not Recovered/Not Resolved]
  - Chills [Not Recovered/Not Resolved]

NARRATIVE: CASE EVENT DATE: 201701
